FAERS Safety Report 5749596-8 (Version None)
Quarter: 2008Q2

REPORT INFORMATION
  Report Type: 
  Country: None (occurrence: None)
  Receive Date: 20080527
  Receipt Date: 20080521
  Transmission Date: 20081010
  Serious: Yes (Other)
  Sender: FDA-Public Use
  Company Number: US-ASTRAZENECA-2008UW10458

PATIENT
  Age: 54 Year
  Sex: Female
  Weight: 49.9 kg

DRUGS (2)
  1. ARIMIDEX [Suspect]
     Indication: BREAST CANCER
     Route: 048
     Dates: start: 20080401
  2. ACTONEL [Concomitant]

REACTIONS (6)
  - ASTHENIA [None]
  - FATIGUE [None]
  - HYPERHIDROSIS [None]
  - RASH [None]
  - SKIN DISORDER [None]
  - TINNITUS [None]
